FAERS Safety Report 7366569-2 (Version None)
Quarter: 2011Q1

REPORT INFORMATION
  Report Type: 
  Country: None (occurrence: None)
  Receive Date: 20110322
  Receipt Date: 20110315
  Transmission Date: 20110831
  Serious: Yes (Hospitalization, Other)
  Sender: FDA-Public Use
  Company Number: FR-SANOFI-AVENTIS-2010SA070829

PATIENT
  Age: 38 Year
  Sex: Female
  Weight: 57 kg

DRUGS (8)
  1. TAXOTERE [Suspect]
     Dates: start: 20101015, end: 20101015
  2. AMITRIPTYLINE HCL [Concomitant]
  3. TAXOTERE [Suspect]
     Dates: start: 20101109
  4. EMEND [Concomitant]
     Indication: ANTIEMETIC SUPPORTIVE CARE
     Route: 048
     Dates: start: 20101109, end: 20101109
  5. ACUPAN [Concomitant]
  6. DEPAKENE [Concomitant]
  7. TAXOTERE [Suspect]
     Indication: BREAST CANCER
     Dates: start: 20100928, end: 20100928
  8. EMEND [Concomitant]
     Route: 048
     Dates: start: 20101110, end: 20101111

REACTIONS (6)
  - MENINGORADICULITIS [None]
  - MENINGEAL DISORDER [None]
  - NASOPHARYNGITIS [None]
  - NEUTROPENIA [None]
  - ARTHRALGIA [None]
  - PYREXIA [None]
